FAERS Safety Report 4732771-9 (Version None)
Quarter: 2005Q3

REPORT INFORMATION
  Report Type: 
  Country: None (occurrence: None)
  Receive Date: 20050801
  Receipt Date: 20050719
  Transmission Date: 20060218
  Serious: Yes (Death, Hospitalization)
  Sender: FDA-Public Use
  Company Number: 2005BI005695

PATIENT
  Age: 45 Year
  Sex: Male

DRUGS (11)
  1. AVONEX [Suspect]
     Indication: MULTIPLE SCLEROSIS
     Dosage: 30 UG;IM
     Route: 030
     Dates: start: 20010801
  2. CHLORAL HYDRATE [Concomitant]
  3. ZELNORM [Concomitant]
  4. AMANTADINE [Concomitant]
  5. ZONEGAN [Concomitant]
  6. LOPRESSOR [Concomitant]
  7. BACLOFEN [Concomitant]
  8. DIPENTUM [Concomitant]
  9. LECITHIN [Concomitant]
  10. M.V.I. [Concomitant]
  11. MAGIC BULLET [Concomitant]

REACTIONS (2)
  - DYSPHAGIA [None]
  - PNEUMONIA ASPIRATION [None]
